FAERS Safety Report 6794031-4 (Version None)
Quarter: 2010Q2

REPORT INFORMATION
  Report Type: 
  Country: None (occurrence: None)
  Receive Date: 20100624
  Receipt Date: 20051207
  Transmission Date: 20101027
  Serious: Yes (Death, Hospitalization)
  Sender: FDA-Public Use
  Company Number: US-PFIZER INC-23100231

PATIENT
  Age: 41 Year
  Sex: Male

DRUGS (15)
  1. ARGATROBAN [Suspect]
     Dates: start: 20051207, end: 20051207
  2. EPINEPHRINE [Concomitant]
     Indication: BRADYCARDIA
  3. EPINEPHRINE [Concomitant]
     Indication: HYPOTENSION
  4. EPINEPHRINE [Concomitant]
     Indication: CARDIAC ARREST
  5. VASOPRESSIN [Concomitant]
     Indication: BRADYCARDIA
  6. VASOPRESSIN [Concomitant]
     Indication: HYPOTENSION
  7. VASOPRESSIN [Concomitant]
     Indication: CARDIAC ARREST
  8. CALCIUM GLUCONATE [Concomitant]
  9. VANCOMYCIN [Concomitant]
  10. LEVAQUIN [Concomitant]
  11. PIPERACILLIN AND TAZOBACTAM [Concomitant]
  12. POTASSIUM CHLORIDE [Concomitant]
  13. NEXIUM [Concomitant]
  14. ATIVAN [Concomitant]
  15. TPN [Concomitant]

REACTIONS (3)
  - BRADYCARDIA [None]
  - CARDIAC ARREST [None]
  - HYPOTENSION [None]
